FAERS Safety Report 14968161 (Version 1)
Quarter: 2018Q2

REPORT INFORMATION
  Report Type: Spontaneous
  Country: US (occurrence: US)
  Receive Date: 20180511
  Receipt Date: 20180511
  Transmission Date: 20180711
  Serious: Yes (Hospitalization)
  Sender: FDA-Public Use
  Company Number: None

PATIENT
  Age: 42 Year
  Sex: Female
  Weight: 48.56 kg

DRUGS (1)
  1. ESCITALOPRAM [Suspect]
     Active Substance: ESCITALOPRAM OXALATE
     Indication: BIPOLAR DISORDER
     Route: 048
     Dates: start: 20180127, end: 20180203

REACTIONS (7)
  - Muscular weakness [None]
  - Headache [None]
  - Dizziness [None]
  - Nausea [None]
  - Vomiting [None]
  - Dysarthria [None]
  - Hypoaesthesia [None]

NARRATIVE: CASE EVENT DATE: 20180203
